FAERS Safety Report 12092091 (Version 1)
Quarter: 2016Q1

REPORT INFORMATION
  Report Type: Spontaneous
  Country: US (occurrence: US)
  Receive Date: 20160219
  Receipt Date: 20160219
  Transmission Date: 20160526
  Serious: No
  Sender: FDA-Public Use
  Company Number: US-AUROBINDO-AUR-APL-2015-04447

PATIENT
  Sex: Female

DRUGS (1)
  1. AMOXICILLIN 500MG [Suspect]
     Active Substance: AMOXICILLIN
     Indication: MITRAL VALVE PROLAPSE
     Dosage: 500 MG, 3 TIMES A DAY
     Route: 065

REACTIONS (2)
  - Mitral valve prolapse [Unknown]
  - Off label use [Unknown]
